FAERS Safety Report 6283349-X (Version None)
Quarter: 2009Q3

REPORT INFORMATION
  Report Type: 
  Country: None (occurrence: None)
  Receive Date: 20090721
  Receipt Date: 20090721
  Transmission Date: 20100115
  Serious: Yes (Other)
  Sender: FDA-Public Use
  Company Number: None

PATIENT
  Sex: Male
  Weight: 108.8633 kg

DRUGS (1)
  1. VOLTAREN [Suspect]
     Indication: ROTATOR CUFF SYNDROME
     Dosage: 1 TABLET TWICE DAILY
     Dates: start: 20090605, end: 20090716

REACTIONS (1)
  - HERPES ZOSTER [None]
